FAERS Safety Report 7736437-2 (Version None)
Quarter: 2011Q3

REPORT INFORMATION
  Report Type: 
  Country: None (occurrence: None)
  Receive Date: 20110908
  Receipt Date: 20110901
  Transmission Date: 20111222
  Serious: Yes (Hospitalization)
  Sender: FDA-Public Use
  Company Number: FR-SANOFI-AVENTIS-2011SA056509

PATIENT
  Age: 69 Year
  Sex: Male

DRUGS (8)
  1. PREVISCAN [Concomitant]
  2. MULTAQ [Suspect]
     Route: 048
     Dates: start: 20110111, end: 20110131
  3. MULTAQ [Suspect]
     Route: 048
     Dates: start: 20110701, end: 20110808
  4. BISOPROLOL FUMARATE [Concomitant]
     Dates: start: 20110120
  5. IMOVANE [Concomitant]
  6. AMIODARONE HCL [Concomitant]
     Dates: start: 20091001, end: 20110101
  7. BISOPROLOL FUMARATE [Concomitant]
     Dates: start: 20100501, end: 20110101
  8. CORGARD [Concomitant]
     Dates: start: 20110701

REACTIONS (4)
  - DYSPNOEA [None]
  - EOSINOPHILIA [None]
  - INTERSTITIAL LUNG DISEASE [None]
  - OFF LABEL USE [None]
